FAERS Safety Report 6271775-4 (Version None)
Quarter: 2009Q3

REPORT INFORMATION
  Report Type: 
  Country: None (occurrence: None)
  Receive Date: 20090717
  Receipt Date: 20090709
  Transmission Date: 20100115
  Serious: Yes (Hospitalization)
  Sender: FDA-Public Use
  Company Number: US-BAYER-200926152NA

PATIENT
  Age: 26 Year
  Sex: Female

DRUGS (1)
  1. MIRENA [Suspect]
     Indication: CONTRACEPTION
     Dosage: CONTINUOUS
     Route: 015
     Dates: start: 20090626, end: 20090703

REACTIONS (4)
  - ABDOMINAL PAIN LOWER [None]
  - IUD MIGRATION [None]
  - MUSCLE TWITCHING [None]
  - VAGINAL HAEMORRHAGE [None]
